FAERS Safety Report 21075553 (Version 1)
Quarter: 2022Q3

REPORT INFORMATION
  Report Type: Spontaneous
  Country: CN (occurrence: CN)
  Receive Date: 20220713
  Receipt Date: 20220713
  Transmission Date: 20221027
  Serious: No
  Sender: FDA-Public Use
  Company Number: CN-TENSHI KAIZEN PRIVATE LIMITED-2022TK000016

PATIENT
  Age: 26 Year
  Sex: Female

DRUGS (15)
  1. LORATADINE [Suspect]
     Active Substance: LORATADINE
     Indication: Pruritus
     Dosage: UNK
     Route: 065
  2. LORATADINE [Suspect]
     Active Substance: LORATADINE
     Indication: Injection site reaction
  3. LORATADINE [Suspect]
     Active Substance: LORATADINE
     Indication: Skin reaction
  4. LORATADINE [Suspect]
     Active Substance: LORATADINE
     Indication: Urticaria
  5. NADROPARIN CALCIUM [Suspect]
     Active Substance: NADROPARIN CALCIUM
     Indication: Anticoagulant therapy
     Dosage: UNK, RECEIVED TOTAL 104 INJECTIONS
     Route: 058
  6. NADROPARIN CALCIUM [Suspect]
     Active Substance: NADROPARIN CALCIUM
     Indication: Prophylaxis
  7. NADROPARIN CALCIUM [Suspect]
     Active Substance: NADROPARIN CALCIUM
     Indication: Abortion spontaneous
  8. DYDROGESTERONE [Suspect]
     Active Substance: DYDROGESTERONE
     Indication: Prophylaxis
     Dosage: UNK
     Route: 065
  9. DYDROGESTERONE [Suspect]
     Active Substance: DYDROGESTERONE
     Indication: Abortion spontaneous
  10. ESTRADIOL [Suspect]
     Active Substance: ESTRADIOL
     Indication: Prophylaxis
     Dosage: UNK
     Route: 065
  11. ESTRADIOL [Suspect]
     Active Substance: ESTRADIOL
     Indication: Abortion spontaneous
  12. CHLORPHENIRAMINE [Suspect]
     Active Substance: CHLORPHENIRAMINE
     Indication: Pruritus
     Dosage: UNK
     Route: 065
  13. CHLORPHENIRAMINE [Suspect]
     Active Substance: CHLORPHENIRAMINE
     Indication: Injection site reaction
  14. CHLORPHENIRAMINE [Suspect]
     Active Substance: CHLORPHENIRAMINE
     Indication: Skin reaction
  15. CHLORPHENIRAMINE [Suspect]
     Active Substance: CHLORPHENIRAMINE
     Indication: Urticaria

REACTIONS (1)
  - Maternal exposure during pregnancy [Unknown]
